FAERS Safety Report 9928375 (Version 1)
Quarter: 2014Q1

REPORT INFORMATION
  Report Type: Spontaneous
  Country: US (occurrence: None)
  Receive Date: 20140226
  Receipt Date: 20140226
  Transmission Date: 20141002
  Serious: Yes (Other)
  Sender: FDA-Public Use
  Company Number: None

PATIENT
  Sex: Male

DRUGS (1)
  1. ZYTIGA [Suspect]
     Indication: PROSTATE CANCER
     Dosage: 1000MG, ONCE DAILY, PO, ON AN EMPTY STOMACH
     Route: 048
     Dates: start: 20140211

REACTIONS (2)
  - Rash [None]
  - Dyspnoea [None]
